FAERS Safety Report 11438864 (Version 1)
Quarter: 2015Q3

REPORT INFORMATION
  Report Type: Spontaneous
  Country: US (occurrence: US)
  Receive Date: 20150901
  Receipt Date: 20150901
  Transmission Date: 20151125
  Serious: No
  Sender: FDA-Public Use
  Company Number: US-ROCHE-1102714

PATIENT
  Sex: Male

DRUGS (1)
  1. PEGASYS [Suspect]
     Active Substance: PEGINTERFERON ALFA-2A
     Indication: PRODUCT USED FOR UNKNOWN INDICATION
     Route: 065

REACTIONS (7)
  - Dizziness [Unknown]
  - Chills [Unknown]
  - Influenza like illness [Unknown]
  - Flushing [Unknown]
  - Fatigue [Unknown]
  - Mood altered [Unknown]
  - Irritability [Unknown]
